FAERS Safety Report 13871676 (Version 1)
Quarter: 2017Q3

REPORT INFORMATION
  Report Type: Spontaneous
  Country: US (occurrence: US)
  Receive Date: 20170816
  Receipt Date: 20170816
  Transmission Date: 20171127
  Serious: Yes (Hospitalization, Other)
  Sender: FDA-Public Use
  Company Number: US-MYLANLABS-2017M1049885

PATIENT

DRUGS (6)
  1. AMPHOTERICIN [Concomitant]
     Active Substance: AMPHOTERICIN B
     Indication: MUCORMYCOSIS
     Route: 042
  2. TACROLIMUS. [Suspect]
     Active Substance: TACROLIMUS
     Indication: IMMUNOSUPPRESSANT DRUG THERAPY
     Route: 065
  3. LIDOCAINE. [Concomitant]
     Active Substance: LIDOCAINE
     Indication: ANAESTHESIA
     Dosage: 2% DAILY FOR 3 DAYS
     Route: 056
  4. BUPIVACAINE. [Concomitant]
     Active Substance: BUPIVACAINE
     Indication: ANAESTHESIA
     Dosage: 0.5% DAILY FOR 3 DAYS
     Route: 056
  5. CASPOFUNGIN [Concomitant]
     Active Substance: CASPOFUNGIN
     Indication: MUCORMYCOSIS
     Route: 065
  6. PREDNISONE MYLAN [Suspect]
     Active Substance: PREDNISONE
     Indication: IMMUNOSUPPRESSANT DRUG THERAPY
     Route: 065

REACTIONS (3)
  - Optic neuropathy [Recovered/Resolved]
  - Parophthalmia [Recovered/Resolved]
  - Mucormycosis [Recovered/Resolved]
